FAERS Safety Report 18909905 (Version 1)
Quarter: 2021Q1

REPORT INFORMATION
  Report Type: Spontaneous
  Country: US (occurrence: US)
  Receive Date: 20210218
  Receipt Date: 20210218
  Transmission Date: 20210420
  Serious: Yes (Hospitalization, Other)
  Sender: FDA-Public Use
  Company Number: None

PATIENT
  Age: 69 Year
  Sex: Female

DRUGS (22)
  1. LEVOFLOXACIN. [Concomitant]
     Active Substance: LEVOFLOXACIN
  2. ZOLPIDEM ER [Concomitant]
     Active Substance: ZOLPIDEM TARTRATE
  3. ASCOMP/COD [Concomitant]
  4. SMZ/TMP DS [Concomitant]
     Active Substance: SULFAMETHOXAZOLE\TRIMETHOPRIM
  5. OXYCODONE AND ACETAMINOPHEN [Concomitant]
     Active Substance: ACETAMINOPHEN\OXYCODONE HYDROCHLORIDE
  6. FOLIC ACID. [Concomitant]
     Active Substance: FOLIC ACID
  7. DICLOFENAC GEL [Concomitant]
     Active Substance: DICLOFENAC
  8. OXYMORPHONE [Concomitant]
     Active Substance: OXYMORPHONE
  9. BUPROPN HCL [Concomitant]
     Active Substance: BUPROPION HYDROCHLORIDE
  10. NITROFURANTIN [Concomitant]
     Active Substance: NITROFURANTOIN
  11. PROMETHAZINE [Concomitant]
     Active Substance: PROMETHAZINE HYDROCHLORIDE
  12. SUCRALFATE. [Concomitant]
     Active Substance: SUCRALFATE
  13. METHOTREXATE. [Concomitant]
     Active Substance: METHOTREXATE
  14. HUMIRA [Suspect]
     Active Substance: ADALIMUMAB
     Indication: PSORIATIC ARTHROPATHY
     Dosage: ?          OTHER FREQUENCY:EVERY 2 WEEKS;?
     Route: 058
     Dates: start: 20180126
  15. ONDANSETRON [Concomitant]
     Active Substance: ONDANSETRON
  16. SUMATRIPTAN. [Concomitant]
     Active Substance: SUMATRIPTAN
  17. OXYCODONE [Concomitant]
     Active Substance: OXYCODONE
  18. NITROFUR MAC [Concomitant]
     Active Substance: NITROFURANTOIN
  19. DIAZEPAM. [Concomitant]
     Active Substance: DIAZEPAM
  20. FLUCONAZOLE. [Concomitant]
     Active Substance: FLUCONAZOLE
  21. PHENAZOPYRID [Concomitant]
  22. PREGABALIN. [Concomitant]
     Active Substance: PREGABALIN

REACTIONS (2)
  - Therapy interrupted [None]
  - Bladder operation [None]
